FAERS Safety Report 9458557 (Version 1)
Quarter: 2013Q3

REPORT INFORMATION
  Report Type: Spontaneous
  Country: US (occurrence: None)
  Receive Date: 20130813
  Receipt Date: 20130813
  Transmission Date: 20140515
  Serious: No
  Sender: FDA-Public Use
  Company Number: None

PATIENT
  Age: 62 Year
  Sex: Male

DRUGS (7)
  1. TECFIDERA [Suspect]
     Indication: MULTIPLE SCLEROSIS
     Dosage: JUNE TO PRESENT?1 CAPSULE BID ORAL
     Route: 048
  2. BACLOFEN [Concomitant]
  3. DIOVAN [Concomitant]
  4. NORVASC [Concomitant]
  5. PRAVACHOL [Concomitant]
  6. ZOLOFT [Concomitant]
  7. MOBIC [Concomitant]

REACTIONS (1)
  - Diarrhoea [None]
